FAERS Safety Report 22539923 (Version 1)
Quarter: 2023Q2

REPORT INFORMATION
  Report Type: Report from Study
  Country: US (occurrence: US)
  Receive Date: 20230609
  Receipt Date: 20230609
  Transmission Date: 20230721
  Serious: Yes (Other)
  Sender: FDA-Public Use
  Company Number: US-002147023-NVSC2023US129339

PATIENT
  Sex: Female

DRUGS (8)
  1. KESIMPTA [Suspect]
     Active Substance: OFATUMUMAB
     Indication: Product used for unknown indication
     Dosage: UNK
     Route: 065
     Dates: start: 20230525
  2. KESIMPTA [Suspect]
     Active Substance: OFATUMUMAB
     Dosage: UNK
     Route: 065
     Dates: start: 20230601
  3. TYLENOL [Concomitant]
     Active Substance: ACETAMINOPHEN
     Indication: Product used for unknown indication
     Dosage: 1 DOSAGE FORM (24 HOURS BEFORE ON 25 MAY 2023, KESIMPTA INJECTION)
     Route: 065
  4. TYLENOL [Concomitant]
     Active Substance: ACETAMINOPHEN
     Dosage: UNK (16 HOURS BEFORE ON 01 JUN 2023 KESIMPTA INJECTION)
     Route: 065
  5. ASPIRIN [Concomitant]
     Active Substance: ASPIRIN
     Indication: Product used for unknown indication
     Dosage: 1 DOSAGE FORM  (24 HOURS BEFORE ON 25 MAY 2023, KESIMPTA INJECTION)
     Route: 065
  6. ASPIRIN [Concomitant]
     Active Substance: ASPIRIN
     Dosage: UNK  (16 HOURS BEFORE ON 01 JUN 2023 KESIMPTA INJECTION)
     Route: 065
  7. PSEUDOPHED [Concomitant]
     Indication: Product used for unknown indication
     Dosage: UNK (24 HOURS BEFORE ON 25 MAY 2023, KESIMPTA INJECTION)
     Route: 065
  8. PSEUDOPHED [Concomitant]
     Dosage: UNK (16 HOURS BEFORE ON 01 JUN 2023 KESIMPTA INJECTION)
     Route: 065

REACTIONS (2)
  - Multiple sclerosis [Unknown]
  - Pyrexia [Unknown]
